FAERS Safety Report 5427581-3 (Version None)
Quarter: 2007Q3

REPORT INFORMATION
  Report Type: 
  Country: None (occurrence: None)
  Receive Date: 20070828
  Receipt Date: 20070824
  Transmission Date: 20080115
  Serious: Yes (Hospitalization)
  Sender: FDA-Public Use
  Company Number: B0484434A

PATIENT
  Age: 28 Year
  Sex: Female

DRUGS (3)
  1. PAXIL [Suspect]
     Indication: DEPRESSED MOOD
     Route: 048
     Dates: start: 20030601, end: 20070221
  2. SULPIRIDE [Concomitant]
     Dosage: 50MG PER DAY
     Route: 048
     Dates: start: 20040601
  3. NITRAZEPAM [Concomitant]
     Dosage: 5MG PER DAY
     Route: 048
     Dates: start: 20040601

REACTIONS (4)
  - ACTIVATION SYNDROME [None]
  - CONVERSION DISORDER [None]
  - REGRESSIVE BEHAVIOUR [None]
  - SELF INJURIOUS BEHAVIOUR [None]
